FAERS Safety Report 13827965 (Version 3)
Quarter: 2018Q3

REPORT INFORMATION
  Report Type: Spontaneous
  Country: CA (occurrence: CA)
  Receive Date: 20170803
  Receipt Date: 20180803
  Transmission Date: 20181010
  Serious: Yes (Hospitalization, Other)
  Sender: FDA-Public Use
  Company Number: CA-ORION CORPORATION ORION PHARMA-TREX2017-2276

PATIENT
  Age: 75 Year
  Sex: Female

DRUGS (22)
  1. ACTEMRA [Suspect]
     Active Substance: TOCILIZUMAB
  2. CELEBREX [Suspect]
     Active Substance: CELECOXIB
  3. FENTANYL. [Suspect]
     Active Substance: FENTANYL
  4. HYDROXYCHLOROQUINE [Suspect]
     Active Substance: HYDROXYCHLOROQUINE
  5. OXYCONTIN [Suspect]
     Active Substance: OXYCODONE HYDROCHLORIDE
  6. GABAPENTIN. [Concomitant]
     Active Substance: GABAPENTIN
  7. ESOMEPRAZOLE MAGNESIUM TRIHYDRATE [Concomitant]
     Active Substance: ESOMEPRAZOLE MAGNESIUM
  8. ORENCIA [Suspect]
     Active Substance: ABATACEPT
  9. METHOTREXATE (TRADE NAME UNKNOWN) [Suspect]
     Active Substance: METHOTREXATE
     Route: 058
  10. ACTONEL [Concomitant]
     Active Substance: RISEDRONATE SODIUM
  11. NORTRIPTYLINE HYDROCHLORIDE. [Concomitant]
     Active Substance: NORTRIPTYLINE HYDROCHLORIDE
  12. OMEGA 3 [Concomitant]
     Active Substance: OMEGA-3 FATTY ACIDS
  13. SULFASALAZINE. [Suspect]
     Active Substance: SULFASALAZINE
  14. DIPHENOXYLATE HYDROCHLORIDE [Concomitant]
     Active Substance: DIPHENOXYLATE HYDROCHLORIDE
  15. FERROUS GLUCONATE [Concomitant]
     Active Substance: FERROUS GLUCONATE
  16. NEXIUM [Concomitant]
     Active Substance: ESOMEPRAZOLE MAGNESIUM
  17. TRAZODONE HYDROCHLORIDE. [Concomitant]
     Active Substance: TRAZODONE HYDROCHLORIDE
  18. ACLASTA [Concomitant]
     Active Substance: ZOLEDRONIC ACID
  19. NASONEX [Concomitant]
     Active Substance: MOMETASONE FUROATE
  20. TYLENOL [Concomitant]
     Active Substance: ACETAMINOPHEN
  21. ENBREL [Suspect]
     Active Substance: ETANERCEPT
  22. PREDNISONE. [Concomitant]
     Active Substance: PREDNISONE

REACTIONS (29)
  - Myocardial infarction [Unknown]
  - Deformity [Unknown]
  - Exostosis [Unknown]
  - Renal impairment [Unknown]
  - Joint swelling [Unknown]
  - Pain [Unknown]
  - Pain in extremity [Unknown]
  - Arthralgia [Unknown]
  - Diarrhoea [Unknown]
  - Dry eye [Unknown]
  - Fatigue [Unknown]
  - Osteopenia [Unknown]
  - Osteosclerosis [Unknown]
  - Deafness neurosensory [Unknown]
  - Osteoarthritis [Unknown]
  - Skin lesion [Unknown]
  - Sleep disorder [Unknown]
  - Adverse drug reaction [Unknown]
  - Arthropathy [Unknown]
  - Bone cyst [Unknown]
  - Hypersensitivity [Unknown]
  - Mobility decreased [Unknown]
  - Drug effect decreased [Unknown]
  - Rheumatoid arthritis [Unknown]
  - Crohn^s disease [Unknown]
  - Pleural fibrosis [Unknown]
  - Presbyacusis [Unknown]
  - Drug ineffective [Unknown]
  - Musculoskeletal stiffness [Unknown]
